FAERS Safety Report 13289978 (Version 1)
Quarter: 2017Q1

REPORT INFORMATION
  Report Type: Spontaneous
  Country: US (occurrence: US)
  Receive Date: 20170302
  Receipt Date: 20170302
  Transmission Date: 20170428
  Serious: Yes (Hospitalization)
  Sender: FDA-Public Use
  Company Number: US-ASTRAZENECA-2017SE21154

PATIENT
  Age: 991 Month
  Sex: Male

DRUGS (8)
  1. FISH OIL [Concomitant]
     Active Substance: FISH OIL
     Route: 065
  2. BRILINTA [Suspect]
     Active Substance: TICAGRELOR
     Indication: ACUTE CORONARY SYNDROME
     Dosage: ONCE A DAY
     Route: 048
     Dates: end: 20170219
  3. FLOREXA [Concomitant]
     Route: 065
  4. CRESTOR [Suspect]
     Active Substance: ROSUVASTATIN CALCIUM
     Route: 048
  5. TRICOR [Concomitant]
     Active Substance: FENOFIBRATE
     Route: 065
  6. ASPIRIN. [Concomitant]
     Active Substance: ASPIRIN
     Route: 065
  7. BRILINTA [Suspect]
     Active Substance: TICAGRELOR
     Indication: ACUTE CORONARY SYNDROME
     Route: 048
     Dates: start: 20160630, end: 20170219
  8. LOPRESSOR [Concomitant]
     Active Substance: METOPROLOL TARTRATE
     Route: 065

REACTIONS (3)
  - Gastrooesophageal reflux disease [Unknown]
  - Vascular stent thrombosis [Unknown]
  - Intentional product misuse [Unknown]

NARRATIVE: CASE EVENT DATE: 201702
